FAERS Safety Report 25442605 (Version 1)
Quarter: 2025Q2

REPORT INFORMATION
  Report Type: Spontaneous
  Country: BG (occurrence: BG)
  Receive Date: 20250617
  Receipt Date: 20250617
  Transmission Date: 20250716
  Serious: Yes (Hospitalization)
  Sender: BOEHRINGER INGELHEIM
  Company Number: BG-BoehringerIngelheim-2025-BI-075741

PATIENT
  Age: 62 Year
  Sex: Female
  Weight: 78 kg

DRUGS (7)
  1. JARDIANCE [Suspect]
     Active Substance: EMPAGLIFLOZIN
     Indication: Type 2 diabetes mellitus
     Dates: start: 202412, end: 202501
  2. JARDIANCE [Suspect]
     Active Substance: EMPAGLIFLOZIN
     Indication: Chronic kidney disease
  3. Levothyroxine 100/125 ?g [Concomitant]
     Indication: Product used for unknown indication
  4. CHOLECALCIFEROL [Concomitant]
     Active Substance: CHOLECALCIFEROL
     Indication: Product used for unknown indication
  5. calcium carbonate 600 mg [Concomitant]
     Indication: Product used for unknown indication
  6. statin/ezetimib [Concomitant]
     Indication: Product used for unknown indication
  7. basal-bolus insulin regimen [Concomitant]
     Indication: Product used for unknown indication

REACTIONS (3)
  - Blood creatinine increased [Recovered/Resolved]
  - Blood triglycerides increased [Recovered/Resolved]
  - Glomerular filtration rate decreased [Recovered/Resolved]

NARRATIVE: CASE EVENT DATE: 20250101
